FAERS Safety Report 9947850 (Version 1)
Quarter: 2014Q1

REPORT INFORMATION
  Report Type: Report from Study
  Country: US (occurrence: US)
  Receive Date: 20140303
  Receipt Date: 20140303
  Transmission Date: 20141002
  Serious: No
  Sender: FDA-Public Use
  Company Number: US-ABBVIE-13P-163-1057476-00

PATIENT
  Sex: Female

DRUGS (2)
  1. HUMIRA [Suspect]
     Indication: COLITIS ULCERATIVE
     Dates: start: 201301
  2. HUMIRA [Suspect]

REACTIONS (3)
  - Drug dose omission [Unknown]
  - Drug dose omission [Unknown]
  - Colitis ulcerative [Unknown]
